FAERS Safety Report 14677814 (Version 3)
Quarter: 2018Q2

REPORT INFORMATION
  Report Type: Report from Study
  Country: None (occurrence: US)
  Receive Date: 20180326
  Receipt Date: 20180625
  Transmission Date: 20180711
  Serious: Yes (Hospitalization, Other)
  Sender: FDA-Public Use
  Company Number: US-ABBVIE-16K-163-1757188-00

PATIENT
  Age: 69 Year
  Sex: Female

DRUGS (4)
  1. HUMIRA [Suspect]
     Active Substance: ADALIMUMAB
     Route: 058
  2. HUMIRA [Suspect]
     Active Substance: ADALIMUMAB
     Indication: RHEUMATOID ARTHRITIS
     Route: 058
  3. HUMIRA [Suspect]
     Active Substance: ADALIMUMAB
     Route: 058
  4. HUMIRA [Suspect]
     Active Substance: ADALIMUMAB
     Route: 058

REACTIONS (32)
  - Vitamin D decreased [Unknown]
  - Herpes zoster [Unknown]
  - Vitamin B12 decreased [Unknown]
  - Blood disorder [Unknown]
  - Diverticulitis [Not Recovered/Not Resolved]
  - Knee arthroplasty [Unknown]
  - Sinus disorder [Unknown]
  - Joint swelling [Unknown]
  - Pain in extremity [Unknown]
  - Cataract [Unknown]
  - Knee arthroplasty [Recovered/Resolved]
  - Dizziness [Unknown]
  - Joint stiffness [Unknown]
  - Blindness unilateral [Unknown]
  - Sensitivity to weather change [Unknown]
  - Irritable bowel syndrome [Unknown]
  - Vision blurred [Unknown]
  - Peripheral swelling [Unknown]
  - Knee arthroplasty [Recovered/Resolved]
  - Fatigue [Unknown]
  - Thyroid disorder [Unknown]
  - Blood folate decreased [Unknown]
  - Gastrooesophageal reflux disease [Unknown]
  - Arthralgia [Unknown]
  - Diarrhoea [Unknown]
  - Fall [Unknown]
  - Hypersensitivity [Unknown]
  - Emphysema [Unknown]
  - Blood potassium decreased [Unknown]
  - Dry eye [Unknown]
  - Headache [Unknown]
  - Urinary tract infection [Unknown]

NARRATIVE: CASE EVENT DATE: 2013
